FAERS Safety Report 5121880-0 (Version None)
Quarter: 2006Q4

REPORT INFORMATION
  Report Type: 
  Country: None (occurrence: None)
  Receive Date: 20061006
  Receipt Date: 20060926
  Transmission Date: 20070319
  Serious: Yes (Hospitalization)
  Sender: FDA-Public Use
  Company Number: US-MERCK-0609USA07217

PATIENT
  Age: 34 Year
  Sex: Female

DRUGS (1)
  1. ZOCOR [Suspect]
     Indication: TYPE IIA HYPERLIPIDAEMIA
     Route: 048
     Dates: start: 19940101

REACTIONS (5)
  - ABDOMINAL PAIN UPPER [None]
  - ABNORMAL FAECES [None]
  - FAECES PALE [None]
  - NAUSEA [None]
  - VOMITING [None]
